FAERS Safety Report 17023158 (Version 1)
Quarter: 2019Q4

REPORT INFORMATION
  Report Type: Spontaneous
  Country: US (occurrence: US)
  Receive Date: 20191112
  Receipt Date: 20191112
  Transmission Date: 20200122
  Serious: Yes (Hospitalization)
  Sender: FDA-Public Use
  Company Number: US-ALSI-201900465

PATIENT
  Age: 37 Year
  Sex: Male

DRUGS (1)
  1. NITROUS OXIDE. [Suspect]
     Active Substance: NITROUS OXIDE
     Indication: DRUG ABUSE

REACTIONS (4)
  - Neurotoxicity [Recovering/Resolving]
  - Subacute combined cord degeneration [Recovering/Resolving]
  - Vitamin B12 deficiency [Recovering/Resolving]
  - Drug abuse [Unknown]
